FAERS Safety Report 8319231-3 (Version None)
Quarter: 2012Q2

REPORT INFORMATION
  Report Type: 
  Country: None (occurrence: None)
  Receive Date: 20120427
  Receipt Date: 20120421
  Transmission Date: 20120825
  Serious: Yes (Hospitalization)
  Sender: FDA-Public Use
  Company Number: US-JNJFOC-20120410158

PATIENT
  Age: 18 Year
  Sex: Male
  Weight: 73.6 kg

DRUGS (2)
  1. ACETAMINOPHEN [Suspect]
     Indication: PRODUCT USED FOR UNKNOWN INDICATION
     Dosage: INGESTED 30-40 TABLETS
     Route: 048
  2. ACETAMINOPHEN [Suspect]
     Route: 048

REACTIONS (4)
  - INTENTIONAL OVERDOSE [None]
  - VOMITING [None]
  - ABDOMINAL PAIN [None]
  - INTENTIONAL SELF-INJURY [None]
